FAERS Safety Report 9121342 (Version 1)
Quarter: 2013Q1

REPORT INFORMATION
  Report Type: Spontaneous
  Country: US (occurrence: US)
  Receive Date: 20130225
  Receipt Date: 20130225
  Transmission Date: 20140127
  Serious: Yes (Hospitalization, Other)
  Sender: FDA-Public Use
  Company Number: US-ASTRAZENECA-2013SE10672

PATIENT
  Age: 70 Year
  Sex: Female
  Weight: 81.6 kg

DRUGS (19)
  1. ARIMIDEX [Suspect]
     Indication: BREAST CANCER
     Route: 048
     Dates: start: 2011
  2. LISINOPRIL [Suspect]
     Indication: HYPERTENSION
     Route: 048
  3. OMEPRAZOLE [Suspect]
     Indication: MUSCULOSKELETAL CHEST PAIN
     Route: 048
  4. OMEPRAZOLE [Suspect]
     Indication: MUSCULOSKELETAL CHEST PAIN
     Route: 048
     Dates: start: 2012
  5. ACCOLATE [Suspect]
     Indication: ASTHMA
     Route: 048
     Dates: start: 2000
  6. MORPHINE [Suspect]
     Route: 065
  7. ADVAIR [Concomitant]
     Indication: ASTHMA
     Dosage: 500/50 DAILY
     Route: 055
     Dates: start: 2000
  8. COMBIVENT [Concomitant]
     Dosage: TWO PUFFS AS REQUIRED
     Route: 055
  9. DUONEB [Concomitant]
     Dosage: 2.5/3 AS REQUIRED
     Route: 055
     Dates: start: 2000
  10. FUROSEMIDE [Concomitant]
     Indication: JOINT SWELLING
  11. NASONEX [Concomitant]
  12. PRAVASTATIN [Concomitant]
     Indication: BLOOD CHOLESTEROL
     Route: 048
     Dates: start: 2012
  13. XYZAL [Concomitant]
     Indication: MULTIPLE ALLERGIES
  14. LEVOCETIRIZINE DI-HCL [Concomitant]
     Indication: MULTIPLE ALLERGIES
     Dosage: 5 HS
     Route: 048
  15. IGG THERAPY [Concomitant]
     Indication: IMMUNE SYSTEM DISORDER
     Dates: start: 2010
  16. ASPIRIN [Concomitant]
     Indication: PALPITATIONS
     Route: 048
  17. PREDNISONE [Concomitant]
     Indication: SINUS DISORDER
     Dosage: AS REQUIRED
     Route: 048
     Dates: start: 2013
  18. TYLENOL [Concomitant]
     Indication: PAIN
     Dosage: AS REQUIRED
     Route: 048
     Dates: start: 201212
  19. IBUPROFEN [Concomitant]
     Indication: PAIN
     Dosage: AS REQUIRED
     Route: 048
     Dates: start: 2012

REACTIONS (24)
  - Pneumonia [Recovered/Resolved]
  - Breast cancer female [Unknown]
  - Cataract [Unknown]
  - Rotator cuff syndrome [Unknown]
  - Drug hypersensitivity [Unknown]
  - Chronic obstructive pulmonary disease [Unknown]
  - Immunodeficiency [Unknown]
  - Hypertension [Unknown]
  - Palpitations [Recovered/Resolved]
  - Joint swelling [Unknown]
  - Sinusitis [Unknown]
  - Eye swelling [Unknown]
  - Swelling face [Unknown]
  - Blood cholesterol increased [Unknown]
  - Middle insomnia [Unknown]
  - Feeling abnormal [Unknown]
  - Salt craving [Unknown]
  - Headache [Unknown]
  - Body height decreased [Unknown]
  - Diverticulitis [Unknown]
  - Musculoskeletal chest pain [Unknown]
  - Arthritis [Unknown]
  - Off label use [Unknown]
  - Drug ineffective [Unknown]
